FAERS Safety Report 4582466-X (Version None)
Quarter: 2005Q1

REPORT INFORMATION
  Report Type: 
  Country: None (occurrence: None)
  Receive Date: 20050211
  Receipt Date: 20050211
  Transmission Date: 20050727
  Serious: Yes (Other)
  Sender: FDA-Public Use
  Company Number: None

PATIENT
  Age: 7 Year
  Sex: Male
  Weight: 21.3191 kg

DRUGS (1)
  1. ADDERALL XR 10 [Suspect]
     Indication: ATTENTION DEFICIT/HYPERACTIVITY DISORDER
     Dosage: TWICE     DAY   ORAL
     Route: 048
     Dates: start: 20040801, end: 20050210

REACTIONS (2)
  - HEART RATE INCREASED [None]
  - IMPULSIVE BEHAVIOUR [None]
